FAERS Safety Report 16861128 (Version 3)
Quarter: 2023Q4

REPORT INFORMATION
  Report Type: Spontaneous
  Country: US (occurrence: US)
  Receive Date: 20190927
  Receipt Date: 20231016
  Transmission Date: 20240109
  Serious: Yes (Other)
  Sender: FDA-Public Use
  Company Number: US-GILEAD-2019-0429692

PATIENT
  Age: 54 Year
  Sex: Male
  Weight: 130.16 kg

DRUGS (49)
  1. ATRIPLA [Suspect]
     Active Substance: EFAVIRENZ\EMTRICITABINE\TENOFOVIR DISOPROXIL FUMARATE
     Indication: HIV infection
     Dosage: UNK
     Route: 048
     Dates: start: 2014, end: 2018
  2. ATRIPLA [Suspect]
     Active Substance: EFAVIRENZ\EMTRICITABINE\TENOFOVIR DISOPROXIL FUMARATE
     Dosage: UNK
     Route: 065
     Dates: start: 2012, end: 20180501
  3. ATRIPLA [Suspect]
     Active Substance: EFAVIRENZ\EMTRICITABINE\TENOFOVIR DISOPROXIL FUMARATE
     Dosage: UNK
     Route: 065
     Dates: start: 201212, end: 20180501
  4. TRUVADA [Suspect]
     Active Substance: EMTRICITABINE\TENOFOVIR DISOPROXIL FUMARATE
     Indication: HIV infection
     Dosage: UNK
     Route: 065
     Dates: start: 20090903, end: 20121222
  5. ALLOPURINOL [Concomitant]
     Active Substance: ALLOPURINOL
  6. TORSEMIDE [Concomitant]
     Active Substance: TORSEMIDE
  7. KLOR-CON [Concomitant]
     Active Substance: POTASSIUM CHLORIDE
  8. LASIX [Concomitant]
     Active Substance: FUROSEMIDE
  9. LISINOPRIL [Concomitant]
     Active Substance: LISINOPRIL
  10. AMLODIPINE [Concomitant]
     Active Substance: AMLODIPINE BESYLATE
  11. BENAZEPRIL [Concomitant]
     Active Substance: BENAZEPRIL HYDROCHLORIDE
  12. HYDROCHLOROTHIAZIDE\METOPROLOL [Concomitant]
     Active Substance: HYDROCHLOROTHIAZIDE\METOPROLOL
  13. NIFEDIPINE [Concomitant]
     Active Substance: NIFEDIPINE
  14. COMBIVIR [Concomitant]
     Active Substance: LAMIVUDINE\ZIDOVUDINE
  15. EDURANT [Concomitant]
     Active Substance: RILPIVIRINE HYDROCHLORIDE
  16. EPIVIR [Concomitant]
     Active Substance: LAMIVUDINE
  17. EPZICOM [Concomitant]
     Active Substance: ABACAVIR SULFATE\LAMIVUDINE
  18. KALETRA [Concomitant]
     Active Substance: LOPINAVIR\RITONAVIR
  19. TRIZIVIR [Concomitant]
     Active Substance: ABACAVIR SULFATE\LAMIVUDINE\ZIDOVUDINE
  20. ZIAGEN [Concomitant]
     Active Substance: ABACAVIR SULFATE
  21. MELOXICAM [Concomitant]
     Active Substance: MELOXICAM
  22. INDOMETHACIN [Concomitant]
     Active Substance: INDOMETHACIN
  23. DICLOFENAC SODIUM [Concomitant]
     Active Substance: DICLOFENAC\DICLOFENAC SODIUM
  24. ATORVASTATIN [Concomitant]
     Active Substance: ATORVASTATIN
  25. CALCITRIOL [Concomitant]
     Active Substance: CALCITRIOL
  26. CALCIUM ACETATE [Concomitant]
     Active Substance: CALCIUM ACETATE
  27. CEFDINIR [Concomitant]
     Active Substance: CEFDINIR
  28. CHLORTHALIDONE [Concomitant]
     Active Substance: CHLORTHALIDONE
  29. CIALIS [Concomitant]
     Active Substance: TADALAFIL
  30. COLCHICINE [Concomitant]
     Active Substance: COLCHICINE
  31. DILTIAZEM [Concomitant]
     Active Substance: DILTIAZEM
  32. DUTOPROL [Concomitant]
     Active Substance: HYDROCHLOROTHIAZIDE\METOPROLOL SUCCINATE
  33. GENTAMICIN [Concomitant]
     Active Substance: GENTAMICIN
  34. HALFLYTELY + BISACODYL BOWEL PREP KIT [Concomitant]
  35. HYDRALAZINE [Concomitant]
     Active Substance: HYDRALAZINE HYDROCHLORIDE
  36. HYDROCODONE [Concomitant]
     Active Substance: HYDROCODONE
  37. ISENTRESS [Concomitant]
     Active Substance: RALTEGRAVIR POTASSIUM
  38. LEVITRA [Concomitant]
     Active Substance: VARDENAFIL HYDROCHLORIDE
  39. LOTEPREDNOL ETABONATE [Concomitant]
     Active Substance: LOTEPREDNOL ETABONATE
  40. METOLAZONE [Concomitant]
     Active Substance: METOLAZONE
  41. OLMESARTAN MEDOXOMIL [Concomitant]
     Active Substance: OLMESARTAN MEDOXOMIL
  42. OXYCODONE [Concomitant]
     Active Substance: OXYCODONE
  43. POTASSIUM CHLORIDE [Concomitant]
     Active Substance: POTASSIUM CHLORIDE
  44. SODIUM BICARBONATE [Concomitant]
     Active Substance: SODIUM BICARBONATE
  45. SULFAMETHOXAZOLE [Concomitant]
     Active Substance: SULFAMETHOXAZOLE
  46. TAMSULOSIN [Concomitant]
     Active Substance: TAMSULOSIN
  47. TRIAMCINOLONE [Concomitant]
     Active Substance: TRIAMCINOLONE
  48. VALSARTAN [Concomitant]
     Active Substance: VALSARTAN
  49. ZOLPIDEM TARTRATE [Concomitant]
     Active Substance: ZOLPIDEM TARTRATE

REACTIONS (16)
  - End stage renal disease [Not Recovered/Not Resolved]
  - Diffuse mesangial sclerosis [Not Recovered/Not Resolved]
  - Chronic kidney disease [Not Recovered/Not Resolved]
  - Renal failure [Recovered/Resolved]
  - Acute kidney injury [Recovered/Resolved]
  - Fatigue [Unknown]
  - Loss of personal independence in daily activities [Unknown]
  - Decreased activity [Unknown]
  - Quality of life decreased [Unknown]
  - Depression [Not Recovered/Not Resolved]
  - Pain [Not Recovered/Not Resolved]
  - Emotional distress [Not Recovered/Not Resolved]
  - Anxiety [Not Recovered/Not Resolved]
  - Anhedonia [Not Recovered/Not Resolved]
  - Economic problem [Not Recovered/Not Resolved]
  - Gout [Not Recovered/Not Resolved]

NARRATIVE: CASE EVENT DATE: 20130101
